FAERS Safety Report 7297201-4 (Version None)
Quarter: 2011Q1

REPORT INFORMATION
  Report Type: 
  Country: None (occurrence: None)
  Receive Date: 20110216
  Receipt Date: 20110214
  Transmission Date: 20110831
  Serious: Yes (Hospitalization)
  Sender: FDA-Public Use
  Company Number: IT-JNJFOC-20110200456

PATIENT
  Sex: Female

DRUGS (4)
  1. CYMBALTA [Concomitant]
     Indication: ILL-DEFINED DISORDER
     Route: 065
  2. TOPAMAX [Concomitant]
     Indication: ILL-DEFINED DISORDER
  3. RISPERDAL [Suspect]
     Indication: ILL-DEFINED DISORDER
     Route: 048
  4. ABILIFY [Concomitant]
     Indication: ILL-DEFINED DISORDER
     Route: 065

REACTIONS (4)
  - SELF INJURIOUS BEHAVIOUR [None]
  - BRADYKINESIA [None]
  - INTENTIONAL OVERDOSE [None]
  - BRADYPHRENIA [None]
